FAERS Safety Report 9915225 (Version 3)
Quarter: 2014Q1

REPORT INFORMATION
  Report Type: Report from Study
  Country: KR (occurrence: KR)
  Receive Date: 20140220
  Receipt Date: 20140328
  Transmission Date: 20141002
  Serious: Yes (Hospitalization)
  Sender: FDA-Public Use
  Company Number: KR-MERCK-1402KOR009430

PATIENT
  Age: 61 Year
  Sex: Male
  Weight: 71.45 kg

DRUGS (18)
  1. VORINOSTAT [Suspect]
     Indication: MANTLE CELL LYMPHOMA
     Dosage: 200 MG, QD
     Route: 048
     Dates: start: 20140122, end: 20140131
  2. VORINOSTAT [Suspect]
     Dosage: 200 MG, QD
     Route: 048
     Dates: start: 20140218, end: 20140227
  3. FLUDARABINE [Suspect]
     Indication: MANTLE CELL LYMPHOMA
     Dosage: 46 MG, QD
     Route: 042
     Dates: start: 20140122, end: 20140124
  4. FLUDARABINE [Suspect]
     Dosage: 46 MG, QD
     Route: 042
     Dates: start: 20140218, end: 20140220
  5. MITOXANTRONE [Suspect]
     Indication: MANTLE CELL LYMPHOMA
     Dosage: 18 MG, QD
     Route: 042
     Dates: start: 20140122, end: 20140122
  6. MITOXANTRONE [Suspect]
     Dosage: 18 MG, QD
     Route: 042
     Dates: start: 20140218, end: 20140218
  7. DEXAMETHASONE SODIUM PHOSPHATE [Suspect]
     Indication: MANTLE CELL LYMPHOMA
     Dosage: 20 MG, QD
     Route: 042
     Dates: start: 20140122, end: 20140124
  8. DEXAMETHASONE SODIUM PHOSPHATE [Suspect]
     Dosage: 20 MG, QD
     Route: 042
     Dates: start: 20140218, end: 20140220
  9. DEXAMETHASONE [Suspect]
     Indication: MANTLE CELL LYMPHOMA
     Dosage: 10 MG, BID
     Route: 048
     Dates: start: 20140125, end: 20140126
  10. DEXAMETHASONE [Suspect]
     Dosage: 10 MG, BID
     Route: 048
     Dates: start: 20140221, end: 20140222
  11. LEVOTHYROXINE SODIUM [Concomitant]
     Indication: HYPOTHYROIDISM
     Dosage: 125 MCG DAILY DOSE
     Dates: start: 20140212
  12. ATORVASTATIN [Concomitant]
     Indication: HYPERLIPIDAEMIA
     Dosage: 5 MG DAILY DOSE
     Dates: start: 20140212
  13. PREGABALIN [Concomitant]
     Indication: PROPHYLAXIS
     Dosage: 75 MG DAILY DOSE
     Dates: start: 20140212
  14. FENOFIBRATE [Concomitant]
     Indication: HYPERLIPIDAEMIA
     Dosage: 160 MG DAILY DOSE
     Route: 048
     Dates: start: 20140212
  15. METFORMIN [Concomitant]
     Indication: DIABETES MELLITUS
     Dosage: 850 MG DAILY DOSE
     Dates: start: 20140212
  16. ASPIRIN [Concomitant]
     Indication: THROMBOSIS PROPHYLAXIS
     Dosage: 100 MG DAILY DOSE
     Dates: start: 20140212
  17. HUMULIN NPH [Concomitant]
     Indication: DIABETES MELLITUS
     Dosage: UNK
     Dates: start: 20140212
  18. GLIMEPIRIDE [Concomitant]
     Indication: DIABETES MELLITUS
     Dosage: 2 MG DAILY DOSE
     Dates: start: 20140212

REACTIONS (2)
  - Pneumonia [Recovered/Resolved]
  - Pneumonia [Recovered/Resolved]
